FAERS Safety Report 23987670 (Version 1)
Quarter: 2024Q2

REPORT INFORMATION
  Report Type: Spontaneous
  Country: FR (occurrence: FR)
  Receive Date: 20240619
  Receipt Date: 20240619
  Transmission Date: 20240716
  Serious: Yes (Death, Other)
  Sender: FDA-Public Use
  Company Number: None

PATIENT
  Age: 68 Year
  Sex: Male
  Weight: 80.5 kg

DRUGS (3)
  1. LOVENOX [Interacting]
     Active Substance: ENOXAPARIN SODIUM
     Indication: Ischaemic stroke
     Dosage: 16000 IU, QD (8000 IU X2/DAY)
     Route: 058
     Dates: start: 20240527, end: 20240529
  2. LOVENOX [Interacting]
     Active Substance: ENOXAPARIN SODIUM
     Dosage: 16000 IU, QD (8000 IU X2/DAY)
     Route: 058
     Dates: start: 20240517, end: 20240518
  3. ORGARAN [Interacting]
     Active Substance: DANAPAROID SODIUM
     Indication: Heparin-induced thrombocytopenia
     Dosage: 2000 IU, TOTAL
     Route: 058
     Dates: start: 20240529, end: 20240529

REACTIONS (1)
  - Subdural haematoma [Fatal]

NARRATIVE: CASE EVENT DATE: 20240530
